FAERS Safety Report 7096403-X (Version None)
Quarter: 2010Q4

REPORT INFORMATION
  Report Type: 
  Country: None (occurrence: None)
  Receive Date: 20101111
  Receipt Date: 20101109
  Transmission Date: 20110411
  Serious: Yes (Hospitalization)
  Sender: FDA-Public Use
  Company Number: IT-PFIZER INC-2010136325

PATIENT
  Age: 23 Year
  Sex: Female

DRUGS (2)
  1. BASSADO [Suspect]
     Dosage: 100 MG, 1X/DAY
     Route: 048
     Dates: start: 20100629, end: 20100630
  2. AMOXICILLIN [Suspect]
     Dosage: 3 G, DAILY
     Route: 048
     Dates: start: 20100628, end: 20100629

REACTIONS (2)
  - ACUTE GENERALISED EXANTHEMATOUS PUSTULOSIS [None]
  - RASH PUSTULAR [None]
